FAERS Safety Report 12527454 (Version 2)
Quarter: 2016Q3

REPORT INFORMATION
  Report Type: Spontaneous
  Country: JP (occurrence: JP)
  Receive Date: 20160705
  Receipt Date: 20160902
  Transmission Date: 20161109
  Serious: Yes (Death, Hospitalization, Other)
  Sender: FDA-Public Use
  Company Number: JP-BAYER-2016-127591

PATIENT
  Age: 74 Year
  Sex: Female
  Weight: 67 kg

DRUGS (8)
  1. LASIX [Suspect]
     Active Substance: FUROSEMIDE
     Indication: COLON CANCER
     Dosage: DAILY DOSE 40 MG
     Route: 048
  2. REBAMIPIDE [Concomitant]
     Active Substance: REBAMIPIDE
     Indication: GASTRITIS PROPHYLAXIS
     Dosage: DAILY DOSE 300 MG
     Route: 048
     Dates: start: 20160623, end: 20160702
  3. LOXOPROFEN SODIUM [Suspect]
     Active Substance: LOXOPROFEN SODIUM
     Indication: COLON CANCER
     Dosage: DAILY DOSE 180 MG
     Route: 048
     Dates: start: 20160623, end: 20160702
  4. TRAMAL [Suspect]
     Active Substance: TRAMADOL
     Indication: COLON CANCER
     Dosage: DAILY DOSE 100 MG
     Route: 048
     Dates: start: 20160623, end: 20160626
  5. TRAMAL [Suspect]
     Active Substance: TRAMADOL
     Indication: COLON CANCER
     Dosage: DAILY DOSE 25 MG
     Route: 048
     Dates: start: 20160630, end: 20160702
  6. STIVARGA [Suspect]
     Active Substance: REGORAFENIB
     Indication: COLON CANCER
     Dosage: 120 MG, QD (3 WEEKS ON 1 WEEK OFF)
     Route: 048
     Dates: start: 20160616, end: 20160626
  7. ALDACTONE A [Suspect]
     Active Substance: SPIRONOLACTONE
     Indication: COLON CANCER
     Dosage: DAILY DOSE 50 MG
     Route: 048
  8. CYMBALTA [Concomitant]
     Active Substance: DULOXETINE HYDROCHLORIDE
     Indication: COLON CANCER
     Dosage: DAILY DOSE 20 MG
     Route: 048

REACTIONS (7)
  - Aspartate aminotransferase increased [None]
  - Hepatic encephalopathy [None]
  - Feeding disorder [None]
  - Depressed level of consciousness [None]
  - Colon cancer [Fatal]
  - Hepatic failure [None]
  - Alanine aminotransferase increased [None]

NARRATIVE: CASE EVENT DATE: 201606
